FAERS Safety Report 5498920-2 (Version None)
Quarter: 2007Q4

REPORT INFORMATION
  Report Type: 
  Country: None (occurrence: None)
  Receive Date: 20071026
  Receipt Date: 20071015
  Transmission Date: 20080405
  Serious: Yes (Hospitalization)
  Sender: FDA-Public Use
  Company Number: JP-PURDUE-MAG_2007_0000601

PATIENT
  Age: 66 Year
  Sex: Male

DRUGS (5)
  1. OXYCODONE HCL [Suspect]
     Indication: CANCER PAIN
     Dosage: 10 MG, DAILY
     Route: 048
     Dates: start: 20070425, end: 20070920
  2. OXYCODONE HCL [Suspect]
     Dosage: 200 MG, DAILY
     Route: 048
     Dates: start: 20070920, end: 20071010
  3. SELBEX [Concomitant]
     Indication: GASTRITIS
     Dosage: 100 MG, DAILY
     Route: 048
     Dates: start: 20070425, end: 20071010
  4. YODEL [Concomitant]
     Indication: CONSTIPATION
     Dosage: 80 MG, DAILY
     Route: 048
     Dates: start: 20070425, end: 20071010
  5. LENDORMIN [Concomitant]
     Indication: INSOMNIA
     Dosage: .25 MG, DAILY
     Route: 048
     Dates: start: 20070425, end: 20071010

REACTIONS (1)
  - LARGE INTESTINE PERFORATION [None]
